FAERS Safety Report 4834774-2 (Version None)
Quarter: 2005Q4

REPORT INFORMATION
  Report Type: 
  Country: None (occurrence: None)
  Receive Date: 20051122
  Receipt Date: 20051019
  Transmission Date: 20060501
  Serious: No
  Sender: FDA-Public Use
  Company Number: US-BRISTOL-MYERS SQUIBB COMPANY-13150719

PATIENT
  Age: 63 Year
  Sex: Female
  Weight: 56 kg

DRUGS (8)
  1. PRAVACHOL [Suspect]
     Indication: BLOOD CHOLESTEROL INCREASED
     Dosage: RESTARTED IN SEP-2005
     Dates: start: 20050601
  2. SYNTHROID [Concomitant]
  3. RED YEAST RICE [Concomitant]
  4. PAMELOR [Concomitant]
  5. XANAX [Concomitant]
  6. COLOSTRUM [Concomitant]
  7. COENZYME Q10 [Concomitant]
  8. FLAXSEED-PRIMROSE OIL [Concomitant]

REACTIONS (5)
  - BLOOD PRESSURE INCREASED [None]
  - DIZZINESS [None]
  - EAR DISCOMFORT [None]
  - HEADACHE [None]
  - MUSCLE SPASMS [None]
